FAERS Safety Report 6997875-9 (Version None)
Quarter: 2010Q3

REPORT INFORMATION
  Report Type: 
  Country: None (occurrence: None)
  Receive Date: 20100920
  Receipt Date: 20100907
  Transmission Date: 20110219
  Serious: Yes (Hospitalization, Other)
  Sender: FDA-Public Use
  Company Number: CA-ELI_LILLY_AND_COMPANY-CA201009001487

PATIENT
  Sex: Female

DRUGS (3)
  1. FORTEO [Suspect]
  2. CALCIUM + VITAMIN D [Concomitant]
     Dosage: 300 MG, 4/D
  3. VITAMIN D [Concomitant]
     Dosage: 1000 IU, DAILY (1/D)

REACTIONS (4)
  - ARTHRALGIA [None]
  - BONE DENSITY DECREASED [None]
  - FALL [None]
  - TIBIA FRACTURE [None]
